FAERS Safety Report 13856151 (Version 2)
Quarter: 2017Q3

REPORT INFORMATION
  Report Type: Spontaneous
  Country: GB (occurrence: GB)
  Receive Date: 20170810
  Receipt Date: 20170816
  Transmission Date: 20171127
  Serious: Yes (Other)
  Sender: FDA-Public Use
  Company Number: GB-MYLANLABS-2017M1047961

PATIENT

DRUGS (5)
  1. FLUCLOXACILLINE [Concomitant]
     Active Substance: FLUCLOXACILLIN
  2. BOOTS PARACETAMOL [Concomitant]
  3. FERROUS SULFATE. [Concomitant]
     Active Substance: FERROUS SULFATE
  4. NIFEDIPINE. [Concomitant]
     Active Substance: NIFEDIPINE
  5. LABETALOL [Suspect]
     Active Substance: LABETALOL\LABETALOL HYDROCHLORIDE
     Indication: GESTATIONAL HYPERTENSION
     Dosage: 300 MG, TID
     Route: 048
     Dates: start: 20170511

REACTIONS (4)
  - Exposure during pregnancy [Unknown]
  - Pain in extremity [Not Recovered/Not Resolved]
  - Hyperhidrosis [Not Recovered/Not Resolved]
  - Dizziness postural [Recovering/Resolving]

NARRATIVE: CASE EVENT DATE: 20170511
